FAERS Safety Report 9328531 (Version 1)
Quarter: 2013Q2

REPORT INFORMATION
  Report Type: Spontaneous
  Country: US (occurrence: US)
  Receive Date: 20130604
  Receipt Date: 20130604
  Transmission Date: 20140414
  Serious: Yes (Hospitalization)
  Sender: FDA-Public Use
  Company Number: US-SANOFI-AVENTIS-2012SA069396

PATIENT
  Age: 82 Year
  Sex: Male
  Weight: 97.97 kg

DRUGS (6)
  1. SOLOSTAR [Suspect]
     Indication: TYPE 2 DIABETES MELLITUS
     Dates: start: 20120520
  2. LANTUS SOLOSTAR [Suspect]
     Indication: TYPE 2 DIABETES MELLITUS
     Dosage: DOSE:20 UNIT(S)
     Route: 058
     Dates: start: 2012
  3. NOVOLOG [Concomitant]
  4. IRON [Concomitant]
     Dates: start: 20120520
  5. TYLENOL [Concomitant]
     Indication: PAIN
  6. ULTRAM [Concomitant]
     Indication: PAIN
     Dates: start: 201206

REACTIONS (3)
  - Blood glucose increased [Unknown]
  - Blood sodium increased [Unknown]
  - Blood glucose increased [Unknown]
